FAERS Safety Report 10152965 (Version 1)
Quarter: 2014Q2

REPORT INFORMATION
  Report Type: Spontaneous
  Country: US (occurrence: US)
  Receive Date: 20140505
  Receipt Date: 20140505
  Transmission Date: 20141212
  Serious: No
  Sender: FDA-Public Use
  Company Number: US-BAYER-2014-065347

PATIENT
  Age: 46 Year
  Sex: Female

DRUGS (1)
  1. GADAVIST [Suspect]
     Indication: POSTOPERATIVE CARE
     Dosage: 5 MG, ONCE
     Route: 042
     Dates: start: 20140425, end: 20140425

REACTIONS (1)
  - Nausea [None]
